FAERS Safety Report 19734816 (Version 2)
Quarter: 2021Q3

REPORT INFORMATION
  Report Type: Spontaneous
  Country: CN (occurrence: CN)
  Receive Date: 20210824
  Receipt Date: 20210909
  Transmission Date: 20211014
  Serious: Yes (Hospitalization, Other)
  Sender: FDA-Public Use
  Company Number: CN-GILEAD-2021-0544988

PATIENT
  Sex: Female
  Weight: 1.26 kg

DRUGS (21)
  1. ASPIRIN. [Suspect]
     Active Substance: ASPIRIN
     Indication: ANTICOAGULANT THERAPY
     Dosage: 100 MG
     Route: 064
  2. REMODULIN [Suspect]
     Active Substance: TREPROSTINIL
     Indication: PULMONARY ARTERIAL HYPERTENSION
     Dosage: UNK, 0.45?0.9NG/KG/MIN
     Route: 064
  3. SILDENAFIL. [Suspect]
     Active Substance: SILDENAFIL
     Dosage: 75 MG, 1D
     Route: 064
  4. PREDNISONE. [Suspect]
     Active Substance: PREDNISONE
     Dosage: 50 MG
     Route: 064
  5. HYDROXYCHLOROQUINE [Suspect]
     Active Substance: HYDROXYCHLOROQUINE
     Indication: SYSTEMIC LUPUS ERYTHEMATOSUS
     Dosage: 200 MG
     Route: 064
  6. LIDOCAINE. [Suspect]
     Active Substance: LIDOCAINE
     Dosage: UNK, 1%
     Route: 064
  7. WARFARIN [Suspect]
     Active Substance: WARFARIN
     Indication: ANTICOAGULANT THERAPY
     Dosage: 1.5 MG
     Route: 064
  8. POTASSIUM CHLORIDE. [Suspect]
     Active Substance: POTASSIUM CHLORIDE
     Indication: PRODUCT USED FOR UNKNOWN INDICATION
     Dosage: 0.5 G, BID
     Route: 064
  9. NOREPINEPHRINE. [Suspect]
     Active Substance: NOREPINEPHRINE
     Indication: PROPHYLAXIS
     Dosage: UNK, 0.01?0.05 UG/KG/MIN
     Route: 064
  10. FUROSEMIDE. [Suspect]
     Active Substance: FUROSEMIDE
     Indication: PRODUCT USED FOR UNKNOWN INDICATION
     Dosage: 20 MG, 1D
     Route: 064
  11. PREDNISONE. [Suspect]
     Active Substance: PREDNISONE
     Indication: SYSTEMIC LUPUS ERYTHEMATOSUS
     Dosage: 10 MG
     Route: 064
  12. AMBRISENTAN [Suspect]
     Active Substance: AMBRISENTAN
     Indication: PULMONARY ARTERIAL HYPERTENSION
     Dosage: 10 MG, 1D
     Route: 064
  13. TAMIFLU [Suspect]
     Active Substance: OSELTAMIVIR PHOSPHATE
     Indication: H1N1 INFLUENZA
     Dosage: UNK
     Route: 064
  14. CEFACLOR. [Suspect]
     Active Substance: CEFACLOR
     Indication: H1N1 INFLUENZA
     Dosage: UNK
     Route: 064
  15. ROPIVACAINE. [Suspect]
     Active Substance: ROPIVACAINE HYDROCHLORIDE
     Indication: ANAESTHESIA
     Dosage: UNK
     Route: 064
  16. REMODULIN [Suspect]
     Active Substance: TREPROSTINIL
     Dosage: UNK, 1.0?1.2NG/KG/MIN
     Route: 064
  17. SILDENAFIL. [Suspect]
     Active Substance: SILDENAFIL
     Indication: PULMONARY ARTERIAL HYPERTENSION
     Dosage: 50 MG, 1D
     Route: 064
  18. CYCLOSPORIN [Suspect]
     Active Substance: CYCLOSPORINE
     Indication: SYSTEMIC LUPUS ERYTHEMATOSUS
     Dosage: 100 MG
     Route: 064
  19. LOW MOLECULAR WEIGHT HEPARIN [Suspect]
     Active Substance: UNSPECIFIED INGREDIENT
     Indication: PULMONARY ARTERIAL HYPERTENSION
     Dosage: 4000 IU
     Route: 064
  20. LIDOCAINE. [Suspect]
     Active Substance: LIDOCAINE
     Indication: ANAESTHESIA
     Dosage: 3 ML OF 2% TEST DOSE
     Route: 064
  21. EPINEPHRINE. [Suspect]
     Active Substance: EPINEPHRINE
     Indication: PROPHYLAXIS
     Dosage: UNK, 0.01?0.02 UG/KG/MIN
     Route: 064

REACTIONS (3)
  - Foetal growth restriction [Recovered/Resolved]
  - Premature baby [Recovered/Resolved]
  - Foetal exposure during pregnancy [Recovered/Resolved]
